FAERS Safety Report 6889361-1 (Version None)
Quarter: 2010Q3

REPORT INFORMATION
  Report Type: 
  Country: None (occurrence: None)
  Receive Date: 20100730
  Receipt Date: 20080208
  Transmission Date: 20110219
  Serious: No
  Sender: FDA-Public Use
  Company Number: US-PFIZER INC-2007096358

PATIENT
  Sex: Male
  Weight: 82.1 kg

DRUGS (10)
  1. LIPITOR [Suspect]
     Indication: BLOOD CHOLESTEROL INCREASED
     Route: 048
     Dates: start: 20050101
  2. LIPITOR [Suspect]
     Indication: HYPERCHOLESTEROLAEMIA
  3. NIASPAN [Suspect]
     Indication: CORONARY ARTERY DISEASE
     Route: 048
     Dates: start: 20070727
  4. NIASPAN [Suspect]
     Indication: HYPERCHOLESTEROLAEMIA
  5. FOLTX [Concomitant]
     Dates: start: 20010101
  6. PLAVIX [Concomitant]
     Dates: start: 20050601, end: 20050901
  7. TOPROL-XL [Concomitant]
     Dates: start: 20030101
  8. ALTACE [Concomitant]
  9. ASPIRIN [Concomitant]
     Dates: start: 19980101
  10. ZESTRIL [Concomitant]
     Dates: start: 20020101, end: 20070101

REACTIONS (5)
  - BLOOD CREATINE PHOSPHOKINASE INCREASED [None]
  - BLOOD LACTATE DEHYDROGENASE INCREASED [None]
  - HEPATIC ENZYME INCREASED [None]
  - MUSCLE SPASMS [None]
  - UNEVALUABLE EVENT [None]
